FAERS Safety Report 9315439 (Version 2)
Quarter: 2013Q3

REPORT INFORMATION
  Report Type: Spontaneous
  Country: DE (occurrence: DE)
  Receive Date: 20130529
  Receipt Date: 20130705
  Transmission Date: 20140515
  Serious: Yes (Life-Threatening)
  Sender: FDA-Public Use
  Company Number: DE-ASTRAZENECA-2013SE37502

PATIENT
  Age: 19370 Day
  Sex: Female
  Weight: 60 kg

DRUGS (12)
  1. BRILIQUE [Suspect]
     Indication: ACUTE MYOCARDIAL INFARCTION
     Route: 048
     Dates: start: 20130311
  2. BRILIQUE [Suspect]
     Indication: STENT PLACEMENT
     Route: 048
     Dates: start: 20130311
  3. BRILIQUE [Suspect]
     Indication: CORONARY ARTERY DISEASE
     Route: 048
     Dates: start: 20130311
  4. ASS [Concomitant]
     Indication: ACUTE MYOCARDIAL INFARCTION
     Route: 048
     Dates: start: 20130311
  5. ASS [Concomitant]
     Indication: STENT PLACEMENT
     Route: 048
     Dates: start: 20130311
  6. ASS [Concomitant]
     Indication: CORONARY ARTERY DISEASE
     Route: 048
     Dates: start: 20130311
  7. PANTOZOL [Concomitant]
     Indication: ACUTE MYOCARDIAL INFARCTION
     Route: 048
     Dates: start: 20130311
  8. PANTOZOL [Concomitant]
     Indication: STENT PLACEMENT
     Route: 048
     Dates: start: 20130311
  9. PANTOZOL [Concomitant]
     Indication: CORONARY ARTERY DISEASE
     Route: 048
     Dates: start: 20130311
  10. SIMVAHEXAL [Concomitant]
     Indication: ACUTE MYOCARDIAL INFARCTION
     Route: 048
     Dates: start: 20130311
  11. SIMVAHEXAL [Concomitant]
     Indication: STENT PLACEMENT
     Route: 048
     Dates: start: 20130311
  12. SIMVAHEXAL [Concomitant]
     Indication: CORONARY ARTERY DISEASE
     Route: 048
     Dates: start: 20130311

REACTIONS (1)
  - Thrombosis in device [Unknown]
